FAERS Safety Report 24264400 (Version 1)
Quarter: 2024Q3

REPORT INFORMATION
  Report Type: Spontaneous
  Country: CH (occurrence: CH)
  Receive Date: 20240829
  Receipt Date: 20240829
  Transmission Date: 20241017
  Serious: Yes (Other)
  Sender: SANDOZ
  Company Number: CH-002147023-NVSC2022CH210768

PATIENT
  Age: 54 Year
  Sex: Female

DRUGS (7)
  1. ANASTROZOLE [Suspect]
     Active Substance: ANASTROZOLE
     Indication: Breast cancer
     Dosage: 1 MG, QD  (1-0-0-0)
     Route: 048
     Dates: start: 20211215
  2. LETROZOLE [Suspect]
     Active Substance: LETROZOLE
     Indication: Hormone receptor positive HER2 negative breast cancer
     Dosage: 2.5 MG, QD
     Route: 048
     Dates: start: 20211215
  3. RIBOCICLIB [Suspect]
     Active Substance: RIBOCICLIB
     Indication: Hormone receptor positive HER2 negative breast cancer
     Dosage: 200 MG, QD (1-0-0-0)
     Route: 048
     Dates: start: 20220330, end: 20220524
  4. RIBOCICLIB [Suspect]
     Active Substance: RIBOCICLIB
     Dosage: 400 MG, QD
     Route: 048
     Dates: start: 20220219, end: 20220301
  5. RIBOCICLIB [Suspect]
     Active Substance: RIBOCICLIB
     Dosage: 400 MG, QD
     Route: 048
     Dates: end: 20220329
  6. RIBOCICLIB [Suspect]
     Active Substance: RIBOCICLIB
     Dosage: 400 MG
     Route: 048
     Dates: start: 20220112
  7. RIBOCICLIB [Suspect]
     Active Substance: RIBOCICLIB
     Dosage: 200 MG, QD 3WEEKS ON, 1 WEEK OFF
     Route: 048
     Dates: start: 20220117

REACTIONS (8)
  - Leukopenia [Recovering/Resolving]
  - Fatigue [Recovering/Resolving]
  - Headache [Recovered/Resolved]
  - Dry skin [Recovered/Resolved]
  - Neutrophil count decreased [Recovered/Resolved]
  - Haematuria [Recovered/Resolved]
  - Abdominal pain [Recovered/Resolved]
  - Pyrexia [Recovered/Resolved]

NARRATIVE: CASE EVENT DATE: 20220201
